FAERS Safety Report 20955417 (Version 1)
Quarter: 2022Q2

REPORT INFORMATION
  Report Type: Spontaneous
  Country: US (occurrence: US)
  Receive Date: 20220614
  Receipt Date: 20220614
  Transmission Date: 20220720
  Serious: No
  Sender: FDA-Public Use
  Company Number: US-HETERO-HET2022US01297

PATIENT
  Sex: Female

DRUGS (1)
  1. LOSARTAN [Suspect]
     Active Substance: LOSARTAN
     Indication: Product used for unknown indication
     Dosage: 100 MG, BOTTLE OF 90 TABLETS
     Route: 065

REACTIONS (2)
  - Paraesthesia [Unknown]
  - Product substitution issue [Unknown]
